FAERS Safety Report 4469382-9 (Version None)
Quarter: 2004Q4

REPORT INFORMATION
  Report Type: 
  Country: None (occurrence: None)
  Receive Date: 20041008
  Receipt Date: 20040330
  Transmission Date: 20050328
  Serious: No
  Sender: FDA-Public Use
  Company Number: US-BRISTOL-MYERS SQUIBB COMPANY-12572418

PATIENT
  Age: 82 Year
  Sex: Female

DRUGS (1)
  1. AVAPRO [Suspect]
     Dosage: THERAPY FROM: ^FALL OF 2003^ PURCHASED FROM CANADA
     Route: 048
     Dates: start: 20030901

REACTIONS (1)
  - DYSPNOEA [None]
